FAERS Safety Report 17721450 (Version 2)
Quarter: 2020Q3

REPORT INFORMATION
  Report Type: Spontaneous
  Country: US (occurrence: US)
  Receive Date: 20200429
  Receipt Date: 20200722
  Transmission Date: 20201102
  Serious: Yes (Hospitalization, Other)
  Sender: FDA-Public Use
  Company Number: US-PERRIGO-20US005774

PATIENT
  Age: 53 Year
  Sex: Male

DRUGS (6)
  1. PANTOPRAZOLE [Suspect]
     Active Substance: PANTOPRAZOLE
     Indication: DYSPEPSIA
     Dosage: UNK, UNK
     Route: 048
     Dates: start: 2004, end: 2012
  2. PREVACID [Suspect]
     Active Substance: LANSOPRAZOLE
     Indication: DYSPEPSIA
     Dosage: UNK
     Route: 065
     Dates: start: 2004, end: 2012
  3. PRILOSEC [Suspect]
     Active Substance: OMEPRAZOLE MAGNESIUM
     Dosage: UNK, UNK
     Route: 048
     Dates: start: 2004, end: 2012
  4. PREVACID 24 HR [Suspect]
     Active Substance: LANSOPRAZOLE
     Indication: DYSPEPSIA
     Dosage: UNK
     Route: 065
     Dates: start: 200905, end: 2012
  5. PREVACID 24 HR [Suspect]
     Active Substance: LANSOPRAZOLE
     Indication: DYSPEPSIA
  6. PRILOSEC [Suspect]
     Active Substance: OMEPRAZOLE MAGNESIUM
     Indication: DYSPEPSIA
     Dosage: UNK, UNK
     Route: 048
     Dates: start: 1990, end: 2003

REACTIONS (13)
  - Gastric cancer [Unknown]
  - Gastrectomy [Unknown]
  - Gastritis [Not Recovered/Not Resolved]
  - Oesophagoenterostomy [Unknown]
  - Jejunostomy [Unknown]
  - Abdominal distension [Unknown]
  - Fatigue [Unknown]
  - Dyspepsia [Unknown]
  - Chronic gastritis [Unknown]
  - Abdominal pain [Unknown]
  - Diarrhoea [Unknown]
  - Nerve injury [Unknown]
  - Gastric disorder [Unknown]

NARRATIVE: CASE EVENT DATE: 201209
